FAERS Safety Report 4433378-3 (Version None)
Quarter: 2004Q3

REPORT INFORMATION
  Report Type: 
  Country: None (occurrence: None)
  Receive Date: 20040824
  Receipt Date: 20040812
  Transmission Date: 20050211
  Serious: Yes (Life-Threatening, Hospitalization)
  Sender: FDA-Public Use
  Company Number: 04H-028-0270518-00

PATIENT
  Age: 3 Year
  Sex: Male
  Weight: 15 kg

DRUGS (7)
  1. SUCCINYLCHOLINE CHLORIDE [Suspect]
     Indication: INTUBATION
     Dosage: 20 MG, ONCE, INTRAVENOUS
     Route: 042
  2. HALOTHANE [Suspect]
     Indication: ANAESTHESIA
     Dosage: 2%, CONTINUOUS, INHALATION
     Route: 055
  3. PETHIDINE HYDROCHLORIDE [Concomitant]
  4. ATROPINE [Concomitant]
  5. NITROUS OXIDE [Concomitant]
  6. DEXTROSE IN LACTATED RINGER'S [Concomitant]
  7. OXYGEN [Concomitant]

REACTIONS (14)
  - ANAESTHETIC COMPLICATION [None]
  - ARRHYTHMIA [None]
  - BLOOD CREATINE PHOSPHOKINASE INCREASED [None]
  - CARDIAC ARREST [None]
  - CONVULSION [None]
  - DIFFICULTY IN WALKING [None]
  - DUCHENNE MUSCULAR DYSTROPHY [None]
  - ELECTROCARDIOGRAM QRS COMPLEX PROLONGED [None]
  - HYPERKALAEMIA [None]
  - MUSCLE SPASMS [None]
  - MYOGLOBIN URINE PRESENT [None]
  - MYOGLOBINURIA [None]
  - SINUS TACHYCARDIA [None]
  - VENTRICULAR TACHYCARDIA [None]
